FAERS Safety Report 6357184-8 (Version None)
Quarter: 2009Q3

REPORT INFORMATION
  Report Type: 
  Country: None (occurrence: None)
  Receive Date: 20090911
  Receipt Date: 20090902
  Transmission Date: 20100115
  Serious: Yes (Other)
  Sender: FDA-Public Use
  Company Number: 2009US003372

PATIENT
  Age: 48 Year
  Sex: Female

DRUGS (7)
  1. PROGRAF [Suspect]
     Dosage: 0.5 MG, UID/QD, ORAL ; 2.5 MG, UID/QD
     Route: 048
     Dates: start: 20060101
  2. PREDNISONE TAB [Concomitant]
  3. MYOCPHENOLATE (MYCOPHENOLATE MOFETIL) [Concomitant]
  4. IBUPROFEN [Concomitant]
  5. VALGANCICLOVIR HCL [Concomitant]
  6. FENTANYL-100 [Concomitant]
  7. HYDROCODONE/ACETAMINOPHEN (DIHYDROCODEINE) [Concomitant]

REACTIONS (6)
  - BRONCHIAL WALL THICKENING [None]
  - LUNG NEOPLASM [None]
  - LUNG TRANSPLANT REJECTION [None]
  - OFF LABEL USE [None]
  - PAIN [None]
  - POLYARTHRITIS [None]
